FAERS Safety Report 7523360-1 (Version None)
Quarter: 2011Q2

REPORT INFORMATION
  Report Type: 
  Country: None (occurrence: None)
  Receive Date: 20110603
  Receipt Date: 20110527
  Transmission Date: 20111010
  Serious: Yes (Death)
  Sender: FDA-Public Use
  Company Number: A0930081A

PATIENT
  Age: 57 Year
  Sex: Male

DRUGS (2)
  1. COREG [Suspect]
     Dosage: 25MG UNKNOWN
     Route: 048
     Dates: start: 20090205, end: 20110514
  2. UNKNOWN [Concomitant]

REACTIONS (5)
  - MALAISE [None]
  - COMA [None]
  - DEATH [None]
  - DISEASE COMPLICATION [None]
  - BRAIN NEOPLASM [None]
